FAERS Safety Report 8403903-6 (Version None)
Quarter: 2012Q2

REPORT INFORMATION
  Report Type: 
  Country: None (occurrence: None)
  Receive Date: 20120601
  Receipt Date: 20110912
  Transmission Date: 20120825
  Serious: No
  Sender: FDA-Public Use
  Company Number: US-NOVEN-11US003189

PATIENT
  Sex: Female

DRUGS (3)
  1. DAYTRANA [Suspect]
     Dosage: 30 MG, QD
     Route: 062
     Dates: start: 20110101
  2. DAYTRANA [Suspect]
     Dosage: 20 MG X2, QD
     Route: 062
     Dates: start: 20110101, end: 20110101
  3. DAYTRANA [Suspect]
     Indication: ATTENTION DEFICIT/HYPERACTIVITY DISORDER
     Dosage: 30 MG, QD
     Route: 062
     Dates: start: 20050101, end: 20110101

REACTIONS (6)
  - FEELING ABNORMAL [None]
  - DISTURBANCE IN ATTENTION [None]
  - DECREASED APPETITE [None]
  - IMPULSIVE BEHAVIOUR [None]
  - WRONG TECHNIQUE IN DRUG USAGE PROCESS [None]
  - INCORRECT DRUG ADMINISTRATION DURATION [None]
